FAERS Safety Report 5757972-2 (Version None)
Quarter: 2008Q2

REPORT INFORMATION
  Report Type: 
  Country: None (occurrence: None)
  Receive Date: 20080604
  Receipt Date: 20080527
  Transmission Date: 20081010
  Serious: Yes (Other)
  Sender: FDA-Public Use
  Company Number: NO-WYE-G01585108

PATIENT
  Age: 55 Year
  Sex: Male

DRUGS (12)
  1. EFFEXOR [Suspect]
     Dates: start: 20060101, end: 20070220
  2. EFFEXOR [Interacting]
     Dates: start: 20070221
  3. BUSPAR [Concomitant]
     Dates: start: 20060101
  4. VALLERGAN [Concomitant]
     Dates: start: 20070201
  5. MELATONIN [Concomitant]
     Dates: start: 20060101
  6. LYRICA [Concomitant]
     Dates: start: 20070201
  7. LYRICA [Concomitant]
     Dates: start: 20070116, end: 20070201
  8. TRUXAL [Concomitant]
     Dosage: 15 MG, NOT FURTHER SPECIFIED
  9. ZYPREXA [Concomitant]
     Dates: start: 20060801, end: 20061201
  10. SEROQUEL [Interacting]
     Indication: ANXIETY
     Route: 048
     Dates: start: 20070221
  11. SEROQUEL [Interacting]
     Indication: DEPRESSION
     Route: 048
     Dates: start: 20061201, end: 20070220
  12. TOLVON [Concomitant]
     Dates: start: 20060101

REACTIONS (3)
  - BLOOD CHOLESTEROL INCREASED [None]
  - BLOOD TRIGLYCERIDES INCREASED [None]
  - DRUG INTERACTION [None]
